FAERS Safety Report 23939378 (Version 1)
Quarter: 2024Q2

REPORT INFORMATION
  Report Type: Spontaneous
  Country: US (occurrence: US)
  Receive Date: 20240605
  Receipt Date: 20240605
  Transmission Date: 20240716
  Serious: No
  Sender: FDA-Public Use
  Company Number: US-STERISCIENCE B.V.-2023-ST-002321

PATIENT
  Age: 35 Year
  Sex: Female

DRUGS (6)
  1. METOPROLOL [Suspect]
     Active Substance: METOPROLOL
     Indication: Gestational hypertension
     Dosage: UNK
     Route: 065
  2. METOPROLOL [Suspect]
     Active Substance: METOPROLOL
     Indication: Supraventricular tachycardia
  3. CARGLUMIC ACID [Suspect]
     Active Substance: CARGLUMIC ACID
     Indication: N-acetylglutamate synthase deficiency
     Dosage: 2.2 GRAM PER SQUARE METRE, QD
     Route: 065
  4. CARGLUMIC ACID [Suspect]
     Active Substance: CARGLUMIC ACID
     Dosage: 0.8 GRAM PER SQUARE METRE, QD
     Route: 065
  5. CARGLUMIC ACID [Suspect]
     Active Substance: CARGLUMIC ACID
     Dosage: 0.6 GRAM PER SQUARE METRE, QD
     Route: 065
  6. CARGLUMIC ACID [Suspect]
     Active Substance: CARGLUMIC ACID
     Dosage: 1 GRAM PER SQUARE METRE, QD
     Route: 065

REACTIONS (4)
  - Premature delivery [Unknown]
  - Maternal exposure during breast feeding [Unknown]
  - Maternal exposure during pregnancy [Unknown]
  - Off label use [Unknown]
